FAERS Safety Report 5691999-4 (Version None)
Quarter: 2008Q2

REPORT INFORMATION
  Report Type: 
  Country: None (occurrence: None)
  Receive Date: 20080402
  Receipt Date: 20080324
  Transmission Date: 20081010
  Serious: Yes (Hospitalization)
  Sender: FDA-Public Use
  Company Number: US-BAXTER-2008BH002815

PATIENT
  Age: 65 Year
  Sex: Female

DRUGS (1)
  1. ONDANSETRON INJECTION, SINGLE DOSE VIALS (PRESERVATIVE FREE) [Suspect]
     Indication: PROCEDURAL NAUSEA
     Route: 042
     Dates: start: 20080201, end: 20080201

REACTIONS (2)
  - NAUSEA [None]
  - VOMITING [None]
